FAERS Safety Report 23505234 (Version 2)
Quarter: 2024Q1

REPORT INFORMATION
  Report Type: Report from Study
  Country: BR (occurrence: BR)
  Receive Date: 20240209
  Receipt Date: 20240313
  Transmission Date: 20240410
  Serious: Yes (Hospitalization, Other)
  Sender: FDA-Public Use
  Company Number: BR-JNJFOC-20230570467

PATIENT
  Age: 50 Year
  Sex: Male

DRUGS (6)
  1. UPTRAVI [Suspect]
     Active Substance: SELEXIPAG
     Indication: Pulmonary arterial hypertension
     Route: 048
  2. UPTRAVI [Suspect]
     Active Substance: SELEXIPAG
     Route: 048
  3. UPTRAVI [Suspect]
     Active Substance: SELEXIPAG
     Route: 048
  4. LOSARTAN [Concomitant]
     Active Substance: LOSARTAN
  5. FUROSEMIDE [Concomitant]
     Active Substance: FUROSEMIDE
  6. SPIRONOLACTONE [Concomitant]
     Active Substance: SPIRONOLACTONE

REACTIONS (18)
  - Headache [Recovered/Resolved]
  - Diarrhoea [Recovering/Resolving]
  - Hypertension [Unknown]
  - Bone pain [Recovering/Resolving]
  - Hypoaesthesia [Unknown]
  - Vision blurred [Recovering/Resolving]
  - Feeling abnormal [Unknown]
  - Feeling hot [Unknown]
  - Eye pain [Unknown]
  - Wrong technique in product usage process [Unknown]
  - Abdominal pain upper [Recovering/Resolving]
  - Pain [Recovering/Resolving]
  - Eye irritation [Recovering/Resolving]
  - Influenza [Recovering/Resolving]
  - Tremor [Recovering/Resolving]
  - Neuralgia [Recovering/Resolving]
  - Dyspnoea [Recovering/Resolving]
  - Gait inability [Recovering/Resolving]
